FAERS Safety Report 4390908-8 (Version None)
Quarter: 2004Q3

REPORT INFORMATION
  Report Type: 
  Country: None (occurrence: None)
  Receive Date: 20040707
  Receipt Date: 20040630
  Transmission Date: 20050211
  Serious: Yes (Other)
  Sender: FDA-Public Use
  Company Number: 200414967US

PATIENT
  Sex: Female
  Weight: 65.9 kg

DRUGS (3)
  1. LANTUS [Suspect]
     Indication: DIABETES MELLITUS NON-INSULIN-DEPENDENT
     Dosage: DOSE UNIT: UNITS
     Dates: start: 20040121
  2. ALBUTEROL [Concomitant]
     Indication: ASTHMA
     Dosage: DOSE: UNKNOWN
  3. SINGULAIR [Concomitant]
     Indication: ASTHMA
     Dosage: DOSE: UNKNOWN

REACTIONS (3)
  - BLOOD GLUCOSE INCREASED [None]
  - HYPERTENSION [None]
  - WHEEZING [None]
